FAERS Safety Report 19352758 (Version 2)
Quarter: 2021Q2

REPORT INFORMATION
  Report Type: Spontaneous
  Country: US (occurrence: US)
  Receive Date: 20210601
  Receipt Date: 20210602
  Transmission Date: 20210717
  Serious: No
  Sender: FDA-Public Use
  Company Number: US-PFIZER INC-2021251833

PATIENT
  Age: 83 Year

DRUGS (1)
  1. CADUET [Suspect]
     Active Substance: AMLODIPINE BESYLATE\ATORVASTATIN CALCIUM
     Dosage: UNK

REACTIONS (5)
  - Confusional state [Unknown]
  - Mental disorder [Unknown]
  - Stress [Unknown]
  - Chest pain [Unknown]
  - Crying [Unknown]
